FAERS Safety Report 5891973-9 (Version None)
Quarter: 2008Q3

REPORT INFORMATION
  Report Type: 
  Country: None (occurrence: None)
  Receive Date: 20080918
  Receipt Date: 20080910
  Transmission Date: 20090109
  Serious: Yes (Hospitalization)
  Sender: FDA-Public Use
  Company Number: 230207J08CAN

PATIENT
  Sex: Female

DRUGS (6)
  1. REBIF [Suspect]
     Indication: RELAPSING-REMITTING MULTIPLE SCLEROSIS
     Dosage: 44 MCG, 3 IN 1 WEEKS
     Dates: start: 20050930
  2. TOLTERODINE TARTRATE [Concomitant]
  3. ERGOCALCIFEROL [Concomitant]
  4. MULTIVITAMIN /00831701/ [Concomitant]
  5. RALAXIFENE HYDROCHLORIDE [Concomitant]
  6. RISEDRONATE SODIUM [Concomitant]

REACTIONS (2)
  - CARDIAC SEPTAL DEFECT [None]
  - PALPITATIONS [None]
